FAERS Safety Report 5269644-1 (Version None)
Quarter: 2007Q1

REPORT INFORMATION
  Report Type: 
  Country: None (occurrence: None)
  Receive Date: 20070314
  Receipt Date: 20070227
  Transmission Date: 20070707
  Serious: Yes (Hospitalization)
  Sender: FDA-Public Use
  Company Number: VNL_0404_2007

PATIENT
  Age: 54 Year
  Sex: Male

DRUGS (10)
  1. APO-GO [Suspect]
     Indication: PARKINSON'S DISEASE
     Dosage: VAR CON SC
     Route: 058
     Dates: end: 20070101
  2. APO-GO [Suspect]
     Indication: PARKINSON'S DISEASE
     Dosage: DF VARIABLE SC
     Route: 058
     Dates: end: 20070101
  3. SEROQUEL [Concomitant]
  4. MOTILIUM [Concomitant]
  5. ZOLOFT [Concomitant]
  6. MADOPAR [Concomitant]
  7. CARBIDOPA + LEVODOPA [Concomitant]
  8. COMTESS [Concomitant]
  9. IBUPROFEN [Concomitant]
  10. FERRUM (IRON) [Concomitant]

REACTIONS (11)
  - ABDOMINAL PAIN [None]
  - ABSCESS [None]
  - GRANULOMA [None]
  - HAEMOGLOBIN DECREASED [None]
  - HALLUCINATION [None]
  - INCORRECT DOSE ADMINISTERED [None]
  - INTENTIONAL DRUG MISUSE [None]
  - NECROSIS [None]
  - NODULE [None]
  - PARANOIA [None]
  - SELF-MEDICATION [None]
